FAERS Safety Report 17550678 (Version 1)
Quarter: 2020Q1

REPORT INFORMATION
  Report Type: Spontaneous
  Country: US (occurrence: US)
  Receive Date: 20200309
  Receipt Date: 20200309
  Transmission Date: 20200409
  Serious: Yes (Other)
  Sender: FDA-Public Use
  Company Number: None

PATIENT
  Age: 56 Year
  Sex: Male

DRUGS (1)
  1. REVLIMID [Suspect]
     Active Substance: LENALIDOMIDE
     Indication: PARAPROTEINAEMIA
     Route: 048
     Dates: start: 20200123

REACTIONS (3)
  - Pruritus [None]
  - Urticaria [None]
  - Condition aggravated [None]

NARRATIVE: CASE EVENT DATE: 20200226
